FAERS Safety Report 6379708-7 (Version None)
Quarter: 2009Q3

REPORT INFORMATION
  Report Type: 
  Country: None (occurrence: None)
  Receive Date: 20090928
  Receipt Date: 20090916
  Transmission Date: 20100115
  Serious: Yes (Hospitalization, Other)
  Sender: FDA-Public Use
  Company Number: ES-ELI_LILLY_AND_COMPANY-ES200908006456

PATIENT
  Age: 91 Year
  Sex: Female

DRUGS (8)
  1. FORTEO [Suspect]
     Indication: OSTEOPOROSIS
     Dosage: 20 UG, UNKNOWN
     Route: 058
     Dates: start: 20090601, end: 20090701
  2. CALCIO [Concomitant]
     Dosage: UNK, UNKNOWN
     Route: 065
  3. VITAMINS [Concomitant]
     Dosage: UNK, UNKNOWN
     Route: 065
  4. FLATORIL [Concomitant]
     Dosage: UNK, UNKNOWN
     Route: 065
  5. FENTANILO [Concomitant]
     Dosage: UNK, UNKNOWN
     Route: 065
  6. PARACETAMOL [Concomitant]
     Dosage: 1/8H
     Route: 065
  7. NOLOTIL [Concomitant]
     Dosage: 1/4H
     Route: 065
  8. ANALGESICS [Concomitant]
     Dosage: UNK, UNKNOWN
     Route: 065

REACTIONS (3)
  - PAIN [None]
  - PULMONARY OEDEMA [None]
  - RESPIRATORY DISTRESS [None]
